FAERS Safety Report 8443717-4 (Version None)
Quarter: 2012Q2

REPORT INFORMATION
  Report Type: 
  Country: None (occurrence: None)
  Receive Date: 20120618
  Receipt Date: 20120611
  Transmission Date: 20120825
  Serious: Yes (Hospitalization, Congenital Anomaly, Other)
  Sender: FDA-Public Use
  Company Number: DE-ELI_LILLY_AND_COMPANY-DE201206003007

PATIENT

DRUGS (10)
  1. ZYPREXA [Suspect]
     Route: 064
  2. ZYPREXA [Suspect]
     Route: 064
  3. VENLAFAXINE [Concomitant]
     Route: 064
  4. DIMENHYDRINATE [Concomitant]
     Route: 064
  5. DIMENHYDRINATE [Concomitant]
     Route: 064
  6. DIAZEPAM [Concomitant]
     Dosage: UNK
     Route: 064
  7. VENLAFAXINE [Concomitant]
     Route: 064
  8. MIRTAZAPINE [Concomitant]
     Route: 064
  9. MIRTAZAPINE [Concomitant]
     Route: 064
  10. DIAZEPAM [Concomitant]
     Dosage: UNK
     Route: 064

REACTIONS (3)
  - FOETAL EXPOSURE DURING PREGNANCY [None]
  - PREMATURE BABY [None]
  - CEREBRAL CYST [None]
